FAERS Safety Report 5794590-4 (Version None)
Quarter: 2008Q2

REPORT INFORMATION
  Report Type: 
  Country: None (occurrence: None)
  Receive Date: 20080625
  Receipt Date: 20080610
  Transmission Date: 20081010
  Serious: Yes (Life-Threatening, Hospitalization)
  Sender: FDA-Public Use
  Company Number: 2008S1007542

PATIENT
  Age: 27 Year
  Sex: Male

DRUGS (4)
  1. MERCAPTAMINE BITARTRATE (MERCAPTAMINE BITARTRATE) [Suspect]
     Indication: CYSTINOSIS
     Dosage: DAILY; 2400 MG; DAILY
     Dates: start: 19820101
  2. POTASSIUM CHLORIDE [Concomitant]
  3. UN-ALFA [Concomitant]
  4. CALTRATE /00108001/ [Concomitant]

REACTIONS (3)
  - ACUTE CORONARY SYNDROME [None]
  - NAUSEA [None]
  - VOMITING [None]
